FAERS Safety Report 10218176 (Version 2)
Quarter: 2014Q2

REPORT INFORMATION
  Report Type: Spontaneous
  Country: US (occurrence: US)
  Receive Date: 20140605
  Receipt Date: 20140618
  Transmission Date: 20141212
  Serious: No
  Sender: FDA-Public Use
  Company Number: US-BIOGENIDEC-2014BI048290

PATIENT
  Age: 46 Year
  Sex: Female

DRUGS (3)
  1. TECFIDERA [Suspect]
     Indication: MULTIPLE SCLEROSIS
     Dates: start: 20140512
  2. TECFIDERA [Suspect]
     Indication: MULTIPLE SCLEROSIS
     Route: 048
     Dates: start: 201405
  3. TYSABRI [Concomitant]
     Route: 042
     Dates: start: 20121105, end: 20140402

REACTIONS (4)
  - Scratch [Unknown]
  - Skin haemorrhage [Unknown]
  - Flushing [Recovered/Resolved]
  - Diarrhoea [Unknown]
